FAERS Safety Report 8418966 (Version 8)
Quarter: 2015Q1

REPORT INFORMATION
  Report Type: Spontaneous
  Country: US (occurrence: US)
  Receive Date: 20120221
  Receipt Date: 20150106
  Transmission Date: 20150721
  Serious: Yes (Hospitalization, Disabling, Other)
  Sender: FDA-Public Use
  Company Number: US-009507513-1202USA02805

PATIENT
  Sex: Female
  Weight: 76.64 kg

DRUGS (3)
  1. FOSAMAX [Suspect]
     Active Substance: ALENDRONATE SODIUM
     Indication: OSTEOPOROSIS
     Dosage: 70 MG, UNK
     Route: 048
     Dates: start: 20030102, end: 20060204
  2. FOSAMAX PLUS D [Suspect]
     Active Substance: ALENDRONATE SODIUM\CHOLECALCIFEROL
     Indication: OSTEOPOROSIS
     Dosage: 70 MG, UNK
     Route: 048
     Dates: start: 20070208
  3. FOSAMAX [Suspect]
     Active Substance: ALENDRONATE SODIUM
     Indication: OSTEOPENIA
     Dosage: 10 MG, QD
     Route: 048
     Dates: start: 20020107

REACTIONS (23)
  - Radiculitis lumbosacral [Not Recovered/Not Resolved]
  - Breast cyst [Unknown]
  - Femur fracture [Unknown]
  - Intramedullary rod insertion [Recovered/Resolved]
  - Intervertebral disc space narrowing [Unknown]
  - Intramedullary rod insertion [Unknown]
  - Urinary incontinence [Not Recovered/Not Resolved]
  - Femur fracture [Recovered/Resolved]
  - Scoliosis [Unknown]
  - Low turnover osteopathy [Unknown]
  - Intervertebral disc protrusion [Unknown]
  - Vitamin D decreased [Unknown]
  - Chest pain [Unknown]
  - Back pain [Unknown]
  - Haemorrhage [Unknown]
  - Abdominal discomfort [Unknown]
  - Ligament sprain [Unknown]
  - Lumbar radiculopathy [Not Recovered/Not Resolved]
  - Cardiac stress test abnormal [Unknown]
  - Adenotonsillectomy [Unknown]
  - Tooth disorder [Unknown]
  - Dyspnoea [Unknown]
  - Uterine polyp [Unknown]

NARRATIVE: CASE EVENT DATE: 20060615
